FAERS Safety Report 5805730-2 (Version None)
Quarter: 2008Q3

REPORT INFORMATION
  Report Type: 
  Country: None (occurrence: None)
  Receive Date: 20080708
  Receipt Date: 20080708
  Transmission Date: 20090109
  Serious: No
  Sender: FDA-Public Use
  Company Number: None

PATIENT
  Sex: Female

DRUGS (2)
  1. ENBREL [Suspect]
     Dosage: 50 MG/ML
     Dates: start: 20080429
  2. ARIMIDEX [Concomitant]

REACTIONS (1)
  - BREAST CANCER [None]
